FAERS Safety Report 9796571 (Version 7)
Quarter: 2017Q2

REPORT INFORMATION
  Report Type: Spontaneous
  Country: JP (occurrence: JP)
  Receive Date: 20140103
  Receipt Date: 20170611
  Transmission Date: 20170830
  Serious: Yes (Hospitalization)
  Sender: FDA-Public Use
  Company Number: JP-CELGENEUS-087-21880-13125320

PATIENT
  Age: 61 Year
  Sex: Male
  Weight: 60.9 kg

DRUGS (48)
  1. CANDESARTAN CILEXETIL. [Concomitant]
     Active Substance: CANDESARTAN CILEXETIL
     Route: 065
     Dates: start: 20140107
  2. POVIDONE-IODINE. [Concomitant]
     Active Substance: POVIDONE-IODINE
     Route: 065
     Dates: start: 20140107
  3. CEFCAPENE PIVOXIL HYDROCHLORIDE HYDRATE [Concomitant]
     Active Substance: CEFCAPENE PIVOXIL HYDROCHLORIDE HYDRATE
     Indication: ADVERSE EVENT
     Route: 065
     Dates: start: 20120402, end: 20120405
  4. L-CARBOCISTEINE [Concomitant]
     Active Substance: CARBOCYSTEINE
     Indication: ADVERSE EVENT
     Route: 065
     Dates: start: 20121225, end: 20121226
  5. MOXIFLOXACIN HCL [Concomitant]
     Active Substance: MOXIFLOXACIN
     Indication: PRODUCT USED FOR UNKNOWN INDICATION
     Route: 065
     Dates: start: 20160804, end: 20160910
  6. BROMFENAC SODIUM HYDRATE [Concomitant]
     Indication: PRODUCT USED FOR UNKNOWN INDICATION
     Route: 065
     Dates: start: 20160804, end: 20160910
  7. AMBROXOL [Concomitant]
     Active Substance: AMBROXOL
     Dosage: 15 MILLIGRAM
     Route: 065
     Dates: start: 20131222, end: 20131224
  8. IBUPROFEN. [Concomitant]
     Active Substance: IBUPROFEN
     Indication: ADVERSE EVENT
     Dosage: 100 MILLIGRAM
     Route: 048
     Dates: start: 20131222, end: 20131224
  9. POVIDONE-IODINE. [Concomitant]
     Active Substance: POVIDONE-IODINE
     Indication: PRODUCT USED FOR UNKNOWN INDICATION
     Route: 065
     Dates: start: 20080901, end: 20131224
  10. SENNOSIDE [Concomitant]
     Active Substance: SENNOSIDES
     Indication: PRODUCT USED FOR UNKNOWN INDICATION
     Route: 065
     Dates: start: 20120213, end: 20120830
  11. TRANEXAMIC ACID. [Concomitant]
     Active Substance: TRANEXAMIC ACID
     Indication: ADVERSE EVENT
     Route: 065
     Dates: start: 20121225, end: 20121229
  12. LEVOFLOXACIN. [Concomitant]
     Active Substance: LEVOFLOXACIN
     Indication: ADVERSE EVENT
     Dosage: 500 MILLIGRAM
     Route: 065
     Dates: start: 20121225, end: 20121226
  13. LEVOFLOXACIN. [Concomitant]
     Active Substance: LEVOFLOXACIN
     Route: 065
     Dates: start: 20131222, end: 20131224
  14. BENPROPERINE [Concomitant]
     Active Substance: BENPROPERINE
     Indication: ADVERSE EVENT
     Dosage: 20 MILLIGRAM
     Route: 065
     Dates: start: 20131222, end: 20131224
  15. CANDESARTAN CILEXETIL. [Concomitant]
     Active Substance: CANDESARTAN CILEXETIL
     Route: 065
     Dates: start: 20121026, end: 20131224
  16. NIFEDIPINE. [Concomitant]
     Active Substance: NIFEDIPINE
     Route: 065
     Dates: start: 20140107
  17. ASPIRIN. [Concomitant]
     Active Substance: ASPIRIN
     Indication: PRODUCT USED FOR UNKNOWN INDICATION
     Route: 065
     Dates: start: 20120329, end: 20130704
  18. ACETAMINOPHEN. [Concomitant]
     Active Substance: ACETAMINOPHEN
     Route: 065
     Dates: start: 20121225, end: 20121229
  19. CEFEPIME [Concomitant]
     Active Substance: CEFEPIME HYDROCHLORIDE
     Indication: ADVERSE EVENT
     Route: 065
     Dates: start: 20120331, end: 20120402
  20. PROCATEROL HYDROCHLORIDE HYDRATE [Concomitant]
     Indication: ADVERSE EVENT
     Route: 065
     Dates: start: 20130612, end: 20130615
  21. LIDOCAINE. [Concomitant]
     Active Substance: LIDOCAINE
     Indication: PRODUCT USED FOR UNKNOWN INDICATION
     Route: 065
     Dates: start: 20170321, end: 20170321
  22. LOPERAMIDE HYDROCHLORIDE. [Concomitant]
     Active Substance: LOPERAMIDE HYDROCHLORIDE
     Indication: PRODUCT USED FOR UNKNOWN INDICATION
     Route: 065
     Dates: start: 20170420
  23. LENADEX [Suspect]
     Active Substance: DEXAMETHASONE ACETATE
     Indication: PLASMA CELL MYELOMA
     Dosage: 40 MILLIGRAM
     Route: 048
     Dates: start: 20120329
  24. NIFEDIPINE. [Concomitant]
     Active Substance: NIFEDIPINE
     Indication: PRODUCT USED FOR UNKNOWN INDICATION
     Route: 065
     Dates: start: 20080704, end: 20131224
  25. ACETAMINOPHEN. [Concomitant]
     Active Substance: ACETAMINOPHEN
     Indication: ADVERSE EVENT
     Route: 065
     Dates: start: 20120401, end: 20120401
  26. INFLUENZA HA VACCINE [Concomitant]
     Active Substance: INFLUENZA VIRUS VACCINE
     Indication: PRODUCT USED FOR UNKNOWN INDICATION
     Route: 065
     Dates: start: 20121108, end: 20121108
  27. TRANEXAMIC ACID. [Concomitant]
     Active Substance: TRANEXAMIC ACID
     Route: 065
     Dates: start: 20170209, end: 20170211
  28. LEVOCETIRIZINE HYDROCHLORIDE [Concomitant]
     Active Substance: LEVOCETIRIZINE HYDROCHLORIDE
     Indication: ADVERSE EVENT
     Route: 065
     Dates: start: 20130626, end: 20130707
  29. DIMETHICONE. [Concomitant]
     Active Substance: DIMETHICONE
     Indication: PRODUCT USED FOR UNKNOWN INDICATION
     Route: 065
     Dates: start: 20170321, end: 20170321
  30. REVLIMID [Suspect]
     Active Substance: LENALIDOMIDE
     Indication: PLASMA CELL MYELOMA
     Dosage: 25 MILLIGRAM
     Route: 048
     Dates: start: 20120329
  31. ADOAIR [Concomitant]
     Active Substance: FLUTICASONE PROPIONATE\SALMETEROL XINAFOATE
     Indication: ADVERSE EVENT
     Route: 065
     Dates: start: 20130612, end: 20130626
  32. SOLITA [Concomitant]
     Indication: ADVERSE EVENT
     Route: 065
     Dates: start: 20131224, end: 20131228
  33. SOLDEM 3A [Concomitant]
     Active Substance: CARBOHYDRATES\POTASSIUM CHLORIDE\SODIUM CHLORIDE\SODIUM LACTATE
     Indication: ADVERSE EVENT
     Route: 065
     Dates: start: 20131226, end: 20131228
  34. AZILSARTAN [Concomitant]
     Active Substance: AZILSARTAN KAMEDOXOMIL
     Indication: PRODUCT USED FOR UNKNOWN INDICATION
     Route: 065
     Dates: start: 20140213
  35. CANDESARTAN CILEXETIL. [Concomitant]
     Active Substance: CANDESARTAN CILEXETIL
     Indication: PRODUCT USED FOR UNKNOWN INDICATION
     Route: 065
     Dates: start: 20080718, end: 20120816
  36. CEFCAPENE PIVOXIL HYDROCHLORIDE HYDRATE [Concomitant]
     Active Substance: CEFCAPENE PIVOXIL HYDROCHLORIDE HYDRATE
     Route: 065
     Dates: start: 20140813, end: 20140818
  37. BETAMETHASONE SODIUM PHOSPHATE [Concomitant]
     Active Substance: BETAMETHASONE SODIUM PHOSPHATE
     Indication: PRODUCT USED FOR UNKNOWN INDICATION
     Route: 065
     Dates: start: 20160804, end: 20160910
  38. AMBROXOL [Concomitant]
     Active Substance: AMBROXOL
     Indication: ADVERSE EVENT
     Dosage: 15 MILLIGRAM
     Route: 065
     Dates: start: 20130626, end: 20130707
  39. PA TABLETS [Concomitant]
     Active Substance: UNSPECIFIED INGREDIENT
     Indication: ADVERSE EVENT
     Dosage: 100 MILLIGRAM
     Route: 048
     Dates: start: 20131222, end: 20131224
  40. MAGNESIUM OXIDE. [Concomitant]
     Active Substance: MAGNESIUM OXIDE
     Indication: PRODUCT USED FOR UNKNOWN INDICATION
     Route: 065
     Dates: start: 20080701, end: 20120830
  41. INFLUENZA HA VACCINE [Concomitant]
     Active Substance: INFLUENZA VIRUS VACCINE
     Route: 065
     Dates: start: 20141120, end: 20141120
  42. WARFARIN POTASSIUM [Concomitant]
     Active Substance: WARFARIN POTASSIUM
     Indication: ADVERSE EVENT
     Route: 065
     Dates: start: 20130425, end: 20131224
  43. WARFARIN POTASSIUM [Concomitant]
     Active Substance: WARFARIN POTASSIUM
     Route: 065
     Dates: start: 20140107, end: 20170309
  44. XYZAL [Concomitant]
     Active Substance: LEVOCETIRIZINE DIHYDROCHLORIDE
     Indication: ADVERSE EVENT
     Route: 065
     Dates: start: 20140811, end: 20140812
  45. ASPIRIN. [Concomitant]
     Active Substance: ASPIRIN
     Route: 065
     Dates: start: 20170406
  46. MS HOT POULTICE [Concomitant]
     Indication: PRODUCT USED FOR UNKNOWN INDICATION
     Route: 065
     Dates: start: 20090210
  47. INFLUENZA HA VACCINE [Concomitant]
     Active Substance: INFLUENZA VIRUS VACCINE
     Route: 065
     Dates: start: 20131111, end: 20131111
  48. MOVIPREP [Concomitant]
     Active Substance: ASCORBIC ACID\POLYETHYLENE GLYCOL 3350\POTASSIUM CHLORIDE\SODIUM ASCORBATE\SODIUM CHLORIDE\SODIUM SULFATE
     Indication: PRODUCT USED FOR UNKNOWN INDICATION
     Route: 065
     Dates: start: 20170321, end: 20170321

REACTIONS (1)
  - Rhabdomyolysis [Recovered/Resolved]

NARRATIVE: CASE EVENT DATE: 20131224
